FAERS Safety Report 4722430-0 (Version None)
Quarter: 2005Q3

REPORT INFORMATION
  Report Type: 
  Country: None (occurrence: None)
  Receive Date: 20050722
  Receipt Date: 20050414
  Transmission Date: 20060218
  Serious: No
  Sender: FDA-Public Use
  Company Number: US-GLAXOSMITHKLINE-A0554440A

PATIENT
  Age: 77 Year
  Sex: Female
  Weight: 81.4 kg

DRUGS (3)
  1. AVANDIA [Suspect]
     Indication: DRUG USE FOR UNKNOWN INDICATION
     Dosage: 8MG PER DAY
     Route: 048
  2. GLUCOVANCE [Concomitant]
     Dosage: 1TAB TWICE PER DAY
  3. LISINOPRIL [Concomitant]
     Dosage: 2.5MG PER DAY

REACTIONS (3)
  - DYSPNOEA [None]
  - FATIGUE [None]
  - WEIGHT INCREASED [None]
